FAERS Safety Report 6793877-6 (Version None)
Quarter: 2010Q2

REPORT INFORMATION
  Report Type: 
  Country: None (occurrence: None)
  Receive Date: 20100624
  Receipt Date: 20091020
  Transmission Date: 20101027
  Serious: Yes (Other)
  Sender: FDA-Public Use
  Company Number: US-MYLANLABS-2009S1011519

PATIENT
  Age: 16 Year
  Sex: Male

DRUGS (5)
  1. CLOZAPINE [Suspect]
     Route: 048
     Dates: end: 20090913
  2. CLOZAPINE [Suspect]
     Route: 048
     Dates: end: 20090913
  3. CLOZAPINE [Suspect]
     Route: 048
     Dates: end: 20090913
  4. DEPAKOTE [Concomitant]
     Route: 048
  5. COGENTIN [Concomitant]
     Route: 048

REACTIONS (1)
  - GRANULOCYTOPENIA [None]
